FAERS Safety Report 7277178-8 (Version None)
Quarter: 2011Q1

REPORT INFORMATION
  Report Type: 
  Country: None (occurrence: None)
  Receive Date: 20110202
  Receipt Date: 20110202
  Transmission Date: 20110831
  Serious: Yes (Death)
  Sender: FDA-Public Use
  Company Number: None

PATIENT
  Sex: Male
  Weight: 74.8435 kg

DRUGS (1)
  1. AMIODARONE HCL [Suspect]
     Indication: ATRIAL FIBRILLATION
     Dosage: 200MGM ONCE DAILY PO
     Route: 048
     Dates: start: 20100718, end: 20100929

REACTIONS (4)
  - CHEST DISCOMFORT [None]
  - MULTI-ORGAN FAILURE [None]
  - FATIGUE [None]
  - EXERCISE TOLERANCE DECREASED [None]
